FAERS Safety Report 15440539 (Version 1)
Quarter: 2018Q3

REPORT INFORMATION
  Report Type: Spontaneous
  Country: US (occurrence: US)
  Receive Date: 20180928
  Receipt Date: 20180928
  Transmission Date: 20181010
  Serious: No
  Sender: FDA-Public Use
  Company Number: US-PFIZER INC-2018388364

PATIENT
  Age: 12 Year
  Sex: Male
  Weight: 47.63 kg

DRUGS (4)
  1. GENOTROPIN [Suspect]
     Active Substance: SOMATROPIN
     Indication: HYPOPITUITARISM
     Dosage: UNK UNK, 1X/DAY
  2. CORTEF ACETATE [Concomitant]
     Active Substance: HYDROCORTISONE ACETATE
     Indication: HYPOPITUITARISM
     Dosage: 5 MG, 1X/DAY
     Route: 048
  3. SYNTHROID [Suspect]
     Active Substance: LEVOTHYROXINE SODIUM
     Dosage: UNK (INCREASING DOSE FOR SYNTHROID)
  4. SYNTHROID [Suspect]
     Active Substance: LEVOTHYROXINE SODIUM
     Indication: GROWTH HORMONE DEFICIENCY
     Dosage: 50 UG, 1X/DAY
     Route: 048

REACTIONS (6)
  - Injection site bruising [Unknown]
  - Device issue [Unknown]
  - Injection site pain [Unknown]
  - Drug dose omission [Unknown]
  - Injection site haemorrhage [Unknown]
  - Device leakage [Unknown]
